FAERS Safety Report 8910671 (Version 1)
Quarter: 2012Q4

REPORT INFORMATION
  Report Type: Spontaneous
  Country: DE (occurrence: None)
  Receive Date: 20121108
  Receipt Date: 20121108
  Transmission Date: 20130627
  Serious: Yes (Hospitalization)
  Sender: FDA-Public Use
  Company Number: USA/GER/12/0026491

PATIENT
  Age: 54 Year
  Sex: Female

DRUGS (3)
  1. CITALOPRAM [Suspect]
     Indication: DEPRESSION
  2. SEROQUEL (QUETIAPINE FUMARATE) [Suspect]
     Indication: DEPRESSION
  3. AMITRIPTYLINE [Suspect]
     Indication: DEPRESSION

REACTIONS (3)
  - Epistaxis [None]
  - Conjunctival haemorrhage [None]
  - Platelet aggregation abnormal [None]
